FAERS Safety Report 7906973-4 (Version None)
Quarter: 2011Q4

REPORT INFORMATION
  Report Type: 
  Country: None (occurrence: None)
  Receive Date: 20111109
  Receipt Date: 20111109
  Transmission Date: 20120403
  Serious: Yes (Hospitalization, Other)
  Sender: FDA-Public Use
  Company Number: None

PATIENT
  Sex: Male
  Weight: 127.9144 kg

DRUGS (1)
  1. HEPARIN [Suspect]
     Indication: THROMBOSIS PROPHYLAXIS
     Dates: start: 20111001

REACTIONS (2)
  - DOCUMENTED HYPERSENSITIVITY TO ADMINISTERED DRUG [None]
  - WHEEZING [None]
